FAERS Safety Report 24990696 (Version 1)
Quarter: 2025Q1

REPORT INFORMATION
  Report Type: Spontaneous
  Country: US (occurrence: US)
  Receive Date: 20250220
  Receipt Date: 20250220
  Transmission Date: 20250409
  Serious: No
  Sender: TEVA
  Company Number: US-TEVA-VS-3293633

PATIENT
  Age: 72 Year
  Sex: Male

DRUGS (1)
  1. WARFARIN SODIUM [Suspect]
     Active Substance: WARFARIN SODIUM
     Indication: Product used for unknown indication
     Route: 048

REACTIONS (4)
  - Malaise [Unknown]
  - Product taste abnormal [Unknown]
  - Product odour abnormal [Unknown]
  - Burn oesophageal [Unknown]

NARRATIVE: CASE EVENT DATE: 20250101
